FAERS Safety Report 15466076 (Version 1)
Quarter: 2018Q4

REPORT INFORMATION
  Report Type: Spontaneous
  Country: US (occurrence: US)
  Receive Date: 20181004
  Receipt Date: 20181004
  Transmission Date: 20190204
  Serious: No
  Sender: FDA-Public Use
  Company Number: US-MORTON GROVE PHARMACEUTICALS, INC.-2055696

PATIENT
  Age: 60 Year
  Sex: Male
  Weight: 145.45 kg

DRUGS (3)
  1. NEUROTONIN PRN [Concomitant]
  2. HYDROCODONE PRN [Concomitant]
  3. PROMETHAZINE [Suspect]
     Active Substance: PROMETHAZINE\PROMETHAZINE HYDROCHLORIDE
     Route: 048
     Dates: start: 20180925, end: 20180925

REACTIONS (1)
  - Hypersensitivity [Recovered/Resolved]
